FAERS Safety Report 6980679-0 (Version None)
Quarter: 2010Q3

REPORT INFORMATION
  Report Type: 
  Country: None (occurrence: None)
  Receive Date: 20100909
  Receipt Date: 20100902
  Transmission Date: 20110219
  Serious: Yes (Hospitalization)
  Sender: FDA-Public Use
  Company Number: 016084

PATIENT
  Sex: Female
  Weight: 18.3 kg

DRUGS (3)
  1. KEPPRA [Suspect]
     Dosage: (3 ML BID ORAL)
     Route: 048
     Dates: start: 20100501, end: 20100101
  2. KEPPRA [Suspect]
     Dosage: (3 ML BID ORAL)
     Route: 048
     Dates: start: 20100701
  3. VALPROATE SODIUM [Concomitant]

REACTIONS (1)
  - CONVULSION [None]
